FAERS Safety Report 4735700-7 (Version None)
Quarter: 2005Q3

REPORT INFORMATION
  Report Type: 
  Country: None (occurrence: None)
  Receive Date: 20050803
  Receipt Date: 20050719
  Transmission Date: 20060218
  Serious: Yes (Hospitalization, Other)
  Sender: FDA-Public Use
  Company Number: USA0507103163

PATIENT
  Age: 49 Year
  Sex: Female
  Weight: 70 kg

DRUGS (9)
  1. CYMBALTA [Suspect]
     Indication: DEPRESSION
     Dosage: 120 MG DAY
     Dates: start: 20050101
  2. HUMALOG [Concomitant]
  3. NEURONTIN [Concomitant]
  4. COREG [Concomitant]
  5. ACCUPRIL [Concomitant]
  6. CLONOPIN (CLONAZEPAM) [Concomitant]
  7. INSULIN GLARGINE [Concomitant]
  8. FOLIC ACID [Concomitant]
  9. METHADONE [Concomitant]

REACTIONS (4)
  - ARTERIOSPASM CORONARY [None]
  - DRUG INEFFECTIVE [None]
  - MYOCARDIAL INFARCTION [None]
  - PNEUMONIA [None]
